APPROVED DRUG PRODUCT: EPIDUO
Active Ingredient: ADAPALENE; BENZOYL PEROXIDE
Strength: 0.1%;2.5%
Dosage Form/Route: GEL;TOPICAL
Application: N022320 | Product #001 | TE Code: AB
Applicant: GALDERMA LABORATORIES LP
Approved: Dec 8, 2008 | RLD: Yes | RS: Yes | Type: RX

PATENTS:
Patent 8071644 | Expires: Jul 18, 2027
Patent 8080537 | Expires: Jul 18, 2027
Patent 8129362 | Expires: Jul 18, 2027